FAERS Safety Report 10254864 (Version 3)
Quarter: 2014Q4

REPORT INFORMATION
  Report Type: Spontaneous
  Country: US (occurrence: US)
  Receive Date: 20140624
  Receipt Date: 20141029
  Transmission Date: 20150528
  Serious: Yes (Hospitalization, Disabling, Other)
  Sender: FDA-Public Use
  Company Number: US-JNJFOC-20131103379

PATIENT
  Age: 81 Year
  Sex: Female

DRUGS (2)
  1. RISPERIDONE. [Suspect]
     Active Substance: RISPERIDONE
     Indication: DEMENTIA ALZHEIMER^S TYPE
     Route: 048
     Dates: start: 201101
  2. RISPERIDONE. [Suspect]
     Active Substance: RISPERIDONE
     Indication: DEMENTIA ALZHEIMER^S TYPE
     Route: 048
     Dates: end: 2011

REACTIONS (5)
  - Cerebrovascular accident [Unknown]
  - Adverse drug reaction [Unknown]
  - Cerebral infarction [Unknown]
  - Product use issue [Unknown]
  - Cerebral arteriosclerosis [Unknown]

NARRATIVE: CASE EVENT DATE: 201107
